FAERS Safety Report 6697392-X (Version None)
Quarter: 2010Q2

REPORT INFORMATION
  Report Type: 
  Country: None (occurrence: None)
  Receive Date: 20100426
  Receipt Date: 20100413
  Transmission Date: 20101027
  Serious: Yes (Death)
  Sender: FDA-Public Use
  Company Number: FR-WATSON-2010-05537

PATIENT
  Age: 45 Year
  Sex: Male

DRUGS (2)
  1. CLONAZEPAM [Suspect]
     Indication: DRUG USE FOR UNKNOWN INDICATION
     Dosage: 1/2 TABLET
  2. SUBUTEX [Suspect]
     Indication: DRUG USE FOR UNKNOWN INDICATION
     Dosage: 1/2 TABLET

REACTIONS (4)
  - ALTERED STATE OF CONSCIOUSNESS [None]
  - ASPHYXIA [None]
  - DRUG TOXICITY [None]
  - VICTIM OF ABUSE [None]
